FAERS Safety Report 23998667 (Version 2)
Quarter: 2024Q3

REPORT INFORMATION
  Report Type: Report from Study
  Country: US (occurrence: US)
  Receive Date: 20240621
  Receipt Date: 20240705
  Transmission Date: 20241016
  Serious: No
  Sender: SANOFI AVENTIS
  Company Number: US-SA-2024SA002443

PATIENT
  Age: 49 Year
  Sex: Male
  Weight: 78.01 kg

DRUGS (1)
  1. DUPILUMAB [Suspect]
     Active Substance: DUPILUMAB
     Indication: Dermatitis atopic
     Dosage: 300 MG, QOW
     Route: 058

REACTIONS (9)
  - Skin discolouration [Unknown]
  - Lacrimation increased [Unknown]
  - Paraesthesia [Not Recovered/Not Resolved]
  - Miliaria [Not Recovered/Not Resolved]
  - Skin swelling [Not Recovered/Not Resolved]
  - Pruritus [Not Recovered/Not Resolved]
  - Ocular hyperaemia [Unknown]
  - Rash [Not Recovered/Not Resolved]
  - Eye pruritus [Unknown]
